FAERS Safety Report 21043410 (Version 1)
Quarter: 2022Q3

REPORT INFORMATION
  Report Type: Spontaneous
  Country: GB (occurrence: GB)
  Receive Date: 20220705
  Receipt Date: 20220705
  Transmission Date: 20221026
  Serious: Yes (Hospitalization, Other)
  Sender: FDA-Public Use
  Company Number: GB-BIOVITRUM-2022GB06741

PATIENT
  Age: 12 Year
  Sex: Female

DRUGS (10)
  1. METHOTREXATE SODIUM [Suspect]
     Active Substance: METHOTREXATE SODIUM
     Dosage: UNK
  2. CERVARIX [Suspect]
     Active Substance: HUMAN PAPILLOMAVIRUS TYPE 16 L1 CAPSID PROTEIN RESIDUES 2-471 ANTIGEN\HUMAN PAPILLOMAVIRUS TYPE 18 L
     Indication: Prophylaxis
     Dosage: UNK
     Dates: start: 201010, end: 201010
  3. CERVARIX [Suspect]
     Active Substance: HUMAN PAPILLOMAVIRUS TYPE 16 L1 CAPSID PROTEIN RESIDUES 2-471 ANTIGEN\HUMAN PAPILLOMAVIRUS TYPE 18 L
     Dosage: UNK
  4. PREDNISOLONE [Suspect]
     Active Substance: PREDNISOLONE
     Indication: Product used for unknown indication
     Dosage: 5 MG
  5. PREDNISOLONE [Suspect]
     Active Substance: PREDNISOLONE
     Indication: Prophylaxis
     Dosage: 100 MG
     Route: 041
  6. PREDNISOLONE [Suspect]
     Active Substance: PREDNISOLONE
     Dosage: 20 MG
  7. TOCILIZUMAB [Suspect]
     Active Substance: TOCILIZUMAB
     Indication: Prophylaxis
     Dosage: UNK
  8. TOCILIZUMAB [Suspect]
     Active Substance: TOCILIZUMAB
     Indication: Product used for unknown indication
  9. ANAKINRA [Suspect]
     Active Substance: ANAKINRA
     Indication: Prophylaxis
     Dosage: 100 MG, DAILY
  10. ANAKINRA [Suspect]
     Active Substance: ANAKINRA
     Indication: Product used for unknown indication

REACTIONS (18)
  - Fatigue [Unknown]
  - Immobile [Unknown]
  - Joint swelling [Unknown]
  - Cough [Unknown]
  - Pyrexia [Unknown]
  - Arthralgia [Unknown]
  - Somnolence [Unknown]
  - Weight decreased [Unknown]
  - Swelling [Unknown]
  - Pain [Unknown]
  - Juvenile idiopathic arthritis [Unknown]
  - Hyperglycaemia [Unknown]
  - Dyspnoea [Unknown]
  - Pruritus [Unknown]
  - Rash [Unknown]
  - Infection [Unknown]
  - Tonsillitis [Unknown]
  - Off label use [Unknown]
